FAERS Safety Report 8033900-4 (Version None)
Quarter: 2012Q1

REPORT INFORMATION
  Report Type: 
  Country: None (occurrence: None)
  Receive Date: 20120110
  Receipt Date: 20120102
  Transmission Date: 20120608
  Serious: Yes (Hospitalization, Disabling)
  Sender: FDA-Public Use
  Company Number: FR-ELI_LILLY_AND_COMPANY-FR201201000066

PATIENT
  Sex: Male

DRUGS (4)
  1. PROZAC [Concomitant]
     Indication: DEPRESSION
     Dosage: 20 MG, QD
     Route: 048
     Dates: start: 20110426
  2. TERCIAN [Concomitant]
     Indication: DEPRESSION
     Dosage: 25 DROPS DAILY, QD
     Route: 048
     Dates: start: 20110427
  3. OLANZAPINE [Suspect]
     Indication: PSYCHOTIC DISORDER
     Dosage: 300 MG, EVERY 28 DAYS
     Route: 030
     Dates: start: 20101112
  4. DEPAKOTE [Concomitant]
     Indication: AFFECTIVE DISORDER
     Dosage: 500 MG, UNK
     Route: 048

REACTIONS (1)
  - TENDON RUPTURE [None]
